FAERS Safety Report 8485421-2 (Version None)
Quarter: 2012Q3

REPORT INFORMATION
  Report Type: 
  Country: None (occurrence: None)
  Receive Date: 20120703
  Receipt Date: 20120629
  Transmission Date: 20120928
  Serious: Yes (Hospitalization, Other)
  Sender: FDA-Public Use
  Company Number: PHHY2012BR056653

PATIENT
  Sex: Female

DRUGS (9)
  1. DIOVAN HCT [Suspect]
     Dosage: 1 DF (80/12.5MG) DAILY
     Route: 048
     Dates: start: 20060101
  2. OMEPRAZOLE [Concomitant]
     Indication: GASTRIC DISORDER
     Dosage: 20 MG, DAILY
     Route: 048
  3. SUSTRATE [Concomitant]
     Indication: ANGINA PECTORIS
     Dosage: 2 DF, DAILY
     Route: 048
     Dates: start: 20060101
  4. CLONAZEPAM [Concomitant]
     Indication: SEDATION
     Dosage: 1 DF, DAILY
     Route: 048
  5. PROCORALAN [Concomitant]
     Indication: CARDIAC DISORDER
     Dosage: 5 MG, UNK
     Route: 048
  6. CARDIZEM [Concomitant]
     Indication: CARDIAC DISORDER
     Dosage: 90 MG, QW2
     Route: 048
     Dates: start: 20060101
  7. SOMALGIN CARDIO [Concomitant]
     Indication: ANTICOAGULANT THERAPY
     Dosage: 1 DF, DAILY
     Route: 048
     Dates: start: 20060101
  8. ROSUVASTATIN [Concomitant]
     Indication: BLOOD CHOLESTEROL INCREASED
     Dosage: 1 DF, DAILY
     Route: 048
     Dates: start: 20060101
  9. DIOVAN HCT [Suspect]
     Indication: HYPERTENSION
     Dosage: 1 DF (160/12.5MG) DAILY
     Route: 048
     Dates: start: 20060101

REACTIONS (6)
  - CARDIAC DISORDER [None]
  - CHEST PAIN [None]
  - DYSPNOEA [None]
  - TACHYCARDIA [None]
  - NERVOUSNESS [None]
  - STRESS [None]
